FAERS Safety Report 8770514 (Version 1)
Quarter: 2012Q4

REPORT INFORMATION
  Report Type: 
  Country: DE (occurrence: DE)
  Receive Date: 20120906
  Receipt Date: 20120906
  Transmission Date: 20130627
  Serious: Yes (Other)
  Sender: FDA-Public Use
  Company Number: DE-PFIZER INC-2012218869

PATIENT
  Sex: Male

DRUGS (1)
  1. FASTJEKT [Suspect]
     Dosage: 0.3 mg,1 in 1 Total
     Route: 058
     Dates: start: 20120827, end: 20120827

REACTIONS (4)
  - Accidental exposure to product [Unknown]
  - Injection site pallor [Unknown]
  - Injury associated with device [Unknown]
  - Injection site pain [Unknown]
